FAERS Safety Report 25464997 (Version 1)
Quarter: 2025Q2

REPORT INFORMATION
  Report Type: Spontaneous
  Country: US (occurrence: US)
  Receive Date: 20250622
  Receipt Date: 20250622
  Transmission Date: 20250717
  Serious: No
  Sender: SANOFI AVENTIS
  Company Number: US-SA-2025SA175042

PATIENT
  Sex: Male
  Weight: 81.6 kg

DRUGS (7)
  1. DUPIXENT [Suspect]
     Active Substance: DUPILUMAB
     Indication: Neurodermatitis
     Dosage: 600 MG, QOW
     Route: 058
  2. METFORMIN HYDROCHLORIDE [Concomitant]
     Active Substance: METFORMIN HYDROCHLORIDE
  3. CINNAMON [Concomitant]
     Active Substance: CINNAMON
  4. LEVEMIR [Concomitant]
     Active Substance: INSULIN DETEMIR
  5. HUMALOG [Concomitant]
     Active Substance: INSULIN LISPRO
  6. MELATONIN [Concomitant]
     Active Substance: MELATONIN
  7. FISH OIL [Concomitant]
     Active Substance: FISH OIL

REACTIONS (1)
  - Extra dose administered [Unknown]
